FAERS Safety Report 5158154-8 (Version None)
Quarter: 2006Q4

REPORT INFORMATION
  Report Type: 
  Country: None (occurrence: None)
  Receive Date: 20061120
  Receipt Date: 20061120
  Transmission Date: 20070319
  Serious: Yes (Hospitalization)
  Sender: FDA-Public Use
  Company Number: None

PATIENT
  Age: 85 Year
  Sex: Female

DRUGS (8)
  1. PLAVIX [Suspect]
     Dosage: 75 MG OD PO
     Route: 048
  2. SYNTHROID [Concomitant]
  3. URECHOLINE [Concomitant]
  4. SINEMET [Concomitant]
  5. CA CARBONATE [Concomitant]
  6. MULTI-VITAMIN [Concomitant]
  7. LEXAPRO [Concomitant]
  8. PREDNISONE TAB [Concomitant]

REACTIONS (1)
  - UPPER GASTROINTESTINAL HAEMORRHAGE [None]
